FAERS Safety Report 7280966-5 (Version None)
Quarter: 2011Q1

REPORT INFORMATION
  Report Type: 
  Country: None (occurrence: None)
  Receive Date: 20110208
  Receipt Date: 20110131
  Transmission Date: 20110831
  Serious: Yes (Death, Other)
  Sender: FDA-Public Use
  Company Number: CHPA2011US01805

PATIENT
  Age: 57 Year
  Sex: Male

DRUGS (7)
  1. ACETAMINOPHEN [Suspect]
     Route: 048
  2. ETHANOL [Suspect]
     Route: 048
  3. COCAINE [Suspect]
     Route: 048
  4. DRUG THERAPY NOS [Suspect]
     Route: 048
  5. DILTIAZEM [Suspect]
     Route: 048
  6. HYDROCODONE BITARTRATE [Suspect]
     Route: 048
  7. DIPHENHYDRAMINE [Suspect]
     Route: 048

REACTIONS (2)
  - COMPLETED SUICIDE [None]
  - CARDIO-RESPIRATORY ARREST [None]
